FAERS Safety Report 8588938 (Version 3)
Quarter: 2013Q2

REPORT INFORMATION
  Report Type: Spontaneous
  Country: US (occurrence: US)
  Receive Date: 20120531
  Receipt Date: 20130405
  Transmission Date: 20140414
  Serious: Yes (Hospitalization, Congenital Anomaly, Other)
  Sender: FDA-Public Use
  Company Number: US-PFIZER INC-2012128836

PATIENT
  Sex: Male
  Weight: 2.7 kg

DRUGS (4)
  1. ZOLOFT [Suspect]
     Indication: DEPRESSION
     Dosage: 50 MG, HALF TABLET ONCE DAILY
     Route: 064
     Dates: start: 20021017
  2. ZOLOFT [Suspect]
     Indication: ANXIETY
  3. PRENATAL VITAMINS [Concomitant]
     Dosage: UNK
     Route: 064
     Dates: start: 20021231
  4. VICODIN [Concomitant]
     Dosage: ONE TO TWO TABLETS EVERY THREE TO FOUR HOURS AS NEEDED
     Route: 064
     Dates: start: 20030816

REACTIONS (3)
  - Maternal exposure during pregnancy [Unknown]
  - Limb malformation [Unknown]
  - Amniotic band syndrome [Unknown]
